FAERS Safety Report 10102335 (Version 1)
Quarter: 2014Q2

REPORT INFORMATION
  Report Type: Spontaneous
  Country: TR (occurrence: TR)
  Receive Date: 20140424
  Receipt Date: 20140424
  Transmission Date: 20141212
  Serious: Yes (Other)
  Sender: FDA-Public Use
  Company Number: TR-PFIZER INC-2014112042

PATIENT
  Sex: 0

DRUGS (1)
  1. AXITINIB [Suspect]
     Dosage: UNK

REACTIONS (2)
  - Hypothyroidism [Unknown]
  - Rhabdomyolysis [Unknown]
